FAERS Safety Report 21419310 (Version 1)
Quarter: 2022Q4

REPORT INFORMATION
  Report Type: Report from Study
  Country: US (occurrence: US)
  Receive Date: 20221006
  Receipt Date: 20221006
  Transmission Date: 20230113
  Serious: No
  Sender: FDA-Public Use
  Company Number: US-ABBVIE-4135568

PATIENT
  Sex: Female

DRUGS (3)
  1. RINVOQ [Suspect]
     Active Substance: UPADACITINIB
     Indication: Eczema
     Route: 048
     Dates: end: 20220926
  2. Moderna [Concomitant]
     Indication: COVID-19 immunisation
     Dosage: VACCINE
     Route: 030
  3. Moderna [Concomitant]
     Indication: COVID-19 immunisation
     Dosage: BOOSTER
     Route: 030

REACTIONS (3)
  - Seborrhoea [Recovering/Resolving]
  - Acne [Recovering/Resolving]
  - Skin disorder [Recovering/Resolving]
